FAERS Safety Report 9269900 (Version 1)
Quarter: 2013Q2

REPORT INFORMATION
  Report Type: Spontaneous
  Country: FR (occurrence: FR)
  Receive Date: 20130503
  Receipt Date: 20130503
  Transmission Date: 20140414
  Serious: Yes (Hospitalization)
  Sender: FDA-Public Use
  Company Number: FR-UCBSA-084584

PATIENT
  Age: 48 Year
  Sex: Female

DRUGS (7)
  1. KEPPRA [Suspect]
     Dates: start: 201106
  2. PREVISCAN [Suspect]
     Indication: CEREBRAL VENOUS THROMBOSIS
     Dosage: 20 MG
     Route: 048
     Dates: start: 201106
  3. PLAQUENIL [Concomitant]
     Indication: DERMATOMYOSITIS
  4. CORTANCYL [Concomitant]
     Indication: DERMATOMYOSITIS
     Dosage: 5 MG
  5. CORTANCYL [Concomitant]
     Indication: DERMATOMYOSITIS
     Dosage: 5 MG
  6. TEGELINE [Concomitant]
     Indication: DERMATOMYOSITIS
     Dosage: 1MG/KG/DAY
     Dates: start: 201001
  7. CELLCEPT [Concomitant]
     Indication: DERMATOMYOSITIS
     Dates: start: 201103, end: 201106

REACTIONS (2)
  - Hepatocellular injury [Recovered/Resolved]
  - Dyspnoea [Recovered/Resolved]
